FAERS Safety Report 5245278-X (Version None)
Quarter: 2007Q1

REPORT INFORMATION
  Report Type: 
  Country: None (occurrence: None)
  Receive Date: 20070223
  Receipt Date: 20070215
  Transmission Date: 20070707
  Serious: No
  Sender: FDA-Public Use
  Company Number: 2007-001218

PATIENT
  Age: 64 Year
  Sex: Male
  Weight: 82 kg

DRUGS (5)
  1. FLOLAN [Suspect]
     Indication: PULMONARY HYPERTENSION
     Dosage: 60NGKM UNKNOWN
     Route: 042
     Dates: start: 20030501
  2. INFUSION FLUID [Concomitant]
  3. AMOXICILLIN [Concomitant]
     Dosage: 500MG AS DIRECTED
     Route: 048
  4. NEXIUM [Concomitant]
     Dosage: 40MG PER DAY
     Route: 048
  5. UNKNOWN MEDICATION [Concomitant]
     Dosage: 20MG THREE TIMES PER DAY
     Route: 048

REACTIONS (2)
  - CATHETER RELATED COMPLICATION [None]
  - PHARMACEUTICAL PRODUCT COMPLAINT [None]
